FAERS Safety Report 20637335 (Version 1)
Quarter: 2022Q1

REPORT INFORMATION
  Report Type: Spontaneous
  Country: FR (occurrence: FR)
  Receive Date: 20220325
  Receipt Date: 20220325
  Transmission Date: 20220424
  Serious: Yes (Other)
  Sender: FDA-Public Use
  Company Number: None

PATIENT
  Age: 17 Year
  Sex: Female

DRUGS (1)
  1. VANCOMYCIN [Suspect]
     Active Substance: VANCOMYCIN
     Indication: Infection
     Dosage: 1680 MILLIGRAM, QD
     Route: 042
     Dates: end: 20220124

REACTIONS (2)
  - Extravasation [Recovering/Resolving]
  - Infusion site necrosis [Recovering/Resolving]

NARRATIVE: CASE EVENT DATE: 20220124
